FAERS Safety Report 25307593 (Version 1)
Quarter: 2025Q2

REPORT INFORMATION
  Report Type: Spontaneous
  Country: US (occurrence: US)
  Receive Date: 20250513
  Receipt Date: 20250513
  Transmission Date: 20250717
  Serious: Yes (Hospitalization, Other)
  Sender: JOHNSON AND JOHNSON
  Company Number: US-JNJFOC-20250501852

PATIENT

DRUGS (3)
  1. PALIPERIDONE PALMITATE [Suspect]
     Active Substance: PALIPERIDONE PALMITATE
     Indication: Schizophrenia
     Route: 030
  2. PALIPERIDONE PALMITATE [Suspect]
     Active Substance: PALIPERIDONE PALMITATE
  3. PALIPERIDONE PALMITATE [Suspect]
     Active Substance: PALIPERIDONE PALMITATE

REACTIONS (16)
  - Schizophrenia [Unknown]
  - Hospitalisation [Unknown]
  - Psychotic disorder [Unknown]
  - Discontinued product administered [Unknown]
  - Drug ineffective [Unknown]
  - Hypertonia [Unknown]
  - Sedation [Unknown]
  - Injection site pain [Unknown]
  - Diarrhoea [Unknown]
  - Agitation [Unknown]
  - Pain in extremity [Unknown]
  - Constipation [Unknown]
  - Nausea [Unknown]
  - Vomiting [Unknown]
  - Insomnia [Unknown]
  - Headache [Unknown]
